FAERS Safety Report 22343778 (Version 1)
Quarter: 2023Q2

REPORT INFORMATION
  Report Type: Spontaneous
  Country: US (occurrence: US)
  Receive Date: 20230519
  Receipt Date: 20230519
  Transmission Date: 20230722
  Serious: No
  Sender: FDA-Public Use
  Company Number: US-SANOFI-01616886

PATIENT
  Sex: Female

DRUGS (2)
  1. LANTUS SOLOSTAR [Suspect]
     Active Substance: INSULIN GLARGINE
     Dosage: UNK UNK, BID
  2. INSULIN ASPART [Concomitant]
     Active Substance: INSULIN ASPART
     Dosage: UNK UNK, QD

REACTIONS (1)
  - Inappropriate schedule of product administration [Unknown]
